FAERS Safety Report 9016108 (Version 2)
Quarter: 2013Q1

REPORT INFORMATION
  Report Type: Spontaneous
  Country: DK (occurrence: DK)
  Receive Date: 20130116
  Receipt Date: 20130213
  Transmission Date: 20140127
  Serious: Yes (Hospitalization)
  Sender: FDA-Public Use
  Company Number: PHHY2013DK003223

PATIENT
  Age: 60 Year
  Sex: Female

DRUGS (1)
  1. ALNOK [Suspect]
     Indication: HYPERSENSITIVITY
     Route: 048

REACTIONS (3)
  - Liver injury [Unknown]
  - Jaundice [Unknown]
  - Blood bilirubin increased [Unknown]
